FAERS Safety Report 10554755 (Version 1)
Quarter: 2014Q4

REPORT INFORMATION
  Report Type: Spontaneous
  Country: US (occurrence: US)
  Receive Date: 20141030
  Receipt Date: 20141030
  Transmission Date: 20150529
  Serious: No
  Sender: FDA-Public Use
  Company Number: US-BAYER-2014-156247

PATIENT

DRUGS (5)
  1. ZETIA [Concomitant]
     Active Substance: EZETIMIBE
     Indication: BLOOD CHOLESTEROL
  2. LOSARTAN [Concomitant]
     Active Substance: LOSARTAN
     Indication: BLOOD PRESSURE
  3. ASPIRIN. [Concomitant]
     Active Substance: ASPIRIN
  4. VITAMINS [Concomitant]
     Active Substance: VITAMINS
  5. ALEVE PM [Suspect]
     Active Substance: DIPHENHYDRAMINE HYDROCHLORIDE\NAPROXEN SODIUM
     Dosage: UNK, ONCE

REACTIONS (4)
  - Drug ineffective [None]
  - Restless legs syndrome [Recovered/Resolved]
  - Asthenia [None]
  - Sluggishness [None]
